FAERS Safety Report 7420301-2 (Version None)
Quarter: 2011Q2

REPORT INFORMATION
  Report Type: 
  Country: None (occurrence: None)
  Receive Date: 20110418
  Receipt Date: 20110404
  Transmission Date: 20111010
  Serious: Yes (Hospitalization)
  Sender: FDA-Public Use
  Company Number: PHHY2011US27688

PATIENT
  Sex: Female

DRUGS (2)
  1. EXFORGE HCT [Suspect]
     Dosage: 1 DF, QD
     Route: 048
     Dates: start: 20110101
  2. HORMONES [Concomitant]

REACTIONS (10)
  - DEHYDRATION [None]
  - LOSS OF CONSCIOUSNESS [None]
  - VOMITING [None]
  - HEADACHE [None]
  - POLLAKIURIA [None]
  - LIMB DISCOMFORT [None]
  - HYPERTENSION [None]
  - DIZZINESS [None]
  - FEELING ABNORMAL [None]
  - MALAISE [None]
